FAERS Safety Report 16678887 (Version 1)
Quarter: 2019Q3

REPORT INFORMATION
  Report Type: Spontaneous
  Country: US (occurrence: US)
  Receive Date: 20190621
  Receipt Date: 20190621
  Transmission Date: 20191004
  Serious: Yes (Death)
  Sender: FDA-Public Use
  Company Number: None

PATIENT
  Age: 69 Year
  Sex: Female
  Weight: 87.27 kg

DRUGS (17)
  1. DEXAMETHASONE. [Suspect]
     Active Substance: DEXAMETHASONE
     Dates: end: 20180815
  2. LEVALBUTEROL HCL [Concomitant]
     Active Substance: LEVALBUTEROL HYDROCHLORIDE
  3. PANTOPRAZOLE [Concomitant]
     Active Substance: PANTOPRAZOLE
  4. RIVAROXABAN [Concomitant]
     Active Substance: RIVAROXABAN
  5. VANCOMYCIN [Concomitant]
     Active Substance: VANCOMYCIN
  6. VELCADE [Suspect]
     Active Substance: BORTEZOMIB
     Dates: end: 20180815
  7. LORAZEPAM. [Concomitant]
     Active Substance: LORAZEPAM
  8. SODIUM BICARBONATE 8.4% IN DEXTROSE 5% [Concomitant]
  9. SODIUM CHLORIDIE 0.9% [Concomitant]
  10. HYDROMORPHONE [Concomitant]
     Active Substance: HYDROMORPHONE
  11. METOPROLOL TARTRATE. [Concomitant]
     Active Substance: METOPROLOL TARTRATE
  12. MORPHINE [Concomitant]
     Active Substance: MORPHINE
  13. ERTAPENEM. [Concomitant]
     Active Substance: ERTAPENEM SODIUM
  14. MEROPENEM. [Concomitant]
     Active Substance: MEROPENEM
  15. HYDROCORTISONE SODIUM SUCCINATE [Concomitant]
     Active Substance: HYDROCORTISONE SODIUM SUCCINATE
  16. MAGNESIUM SULFATE. [Concomitant]
     Active Substance: MAGNESIUM SULFATE
  17. FUROSEMIDE. [Concomitant]
     Active Substance: FUROSEMIDE

REACTIONS (12)
  - Cardiac failure congestive [None]
  - Monoclonal immunoglobulin present [None]
  - Plasma cell myeloma [None]
  - Thrombocytopenia [None]
  - Leukopenia [None]
  - Autologous haematopoietic stem cell transplant [None]
  - Acute kidney injury [None]
  - Pancytopenia [None]
  - Type 2 diabetes mellitus [None]
  - Sepsis [None]
  - Atrial fibrillation [None]
  - Anaemia [None]

NARRATIVE: CASE EVENT DATE: 20180824
